FAERS Safety Report 5782836-8 (Version None)
Quarter: 2008Q2

REPORT INFORMATION
  Report Type: 
  Country: None (occurrence: None)
  Receive Date: 20080624
  Receipt Date: 20080618
  Transmission Date: 20081010
  Serious: Yes (Death)
  Sender: FDA-Public Use
  Company Number: US-BAYER-200819162NA

PATIENT
  Age: 59 Year
  Sex: Male
  Weight: 86 kg

DRUGS (9)
  1. SORAFENIB [Suspect]
     Indication: RENAL CANCER
     Dosage: TOTAL DAILY DOSE: 800 MG  UNIT DOSE: 200 MG
     Route: 048
     Dates: start: 20080311, end: 20080326
  2. 17-ALLYLAMINOGELDANAMYCIN [17-AAG] [Suspect]
     Indication: RENAL CANCER
     Dosage: AS USED: 900 MG
     Route: 042
     Dates: start: 20080325, end: 20080325
  3. ALEVE [Concomitant]
  4. ASPIRIN [Concomitant]
  5. COMPAZINE [Concomitant]
  6. LOMOTIL [Concomitant]
  7. NORCO [Concomitant]
  8. NORVASC [Concomitant]
  9. VITAMIN [Concomitant]

REACTIONS (1)
  - SUDDEN DEATH [None]
